FAERS Safety Report 9251368 (Version 1)
Quarter: 2013Q2

REPORT INFORMATION
  Report Type: Spontaneous
  Country: FR (occurrence: FR)
  Receive Date: 20130424
  Receipt Date: 20130424
  Transmission Date: 20140414
  Serious: Yes (Hospitalization)
  Sender: FDA-Public Use
  Company Number: FR-ROCHE-1217648

PATIENT
  Age: 67 Year
  Sex: Female

DRUGS (6)
  1. MABTHERA [Suspect]
     Indication: B-CELL LYMPHOMA
     Route: 042
     Dates: start: 20090510, end: 20100517
  2. ADRIBLASTINE [Suspect]
     Indication: B-CELL LYMPHOMA
     Route: 042
     Dates: start: 20091210, end: 20100517
  3. ENDOXAN [Suspect]
     Indication: B-CELL LYMPHOMA
     Route: 042
     Dates: start: 20091210, end: 20100517
  4. ONCOVIN [Suspect]
     Indication: B-CELL LYMPHOMA
     Route: 042
     Dates: start: 20091210, end: 20100517
  5. PREDNISONE [Concomitant]
     Route: 065
     Dates: start: 20091210, end: 20100517
  6. UROMITEXAN [Concomitant]

REACTIONS (1)
  - Acute myeloid leukaemia [Not Recovered/Not Resolved]
